FAERS Safety Report 6338123-2 (Version None)
Quarter: 2009Q3

REPORT INFORMATION
  Report Type: 
  Country: None (occurrence: None)
  Receive Date: 20090902
  Receipt Date: 20090821
  Transmission Date: 20100115
  Serious: Yes (Life-Threatening, Hospitalization)
  Sender: FDA-Public Use
  Company Number: JP-PFIZER INC-2009259999

PATIENT
  Age: 67 Year

DRUGS (10)
  1. SUNITINIB MALATE [Suspect]
     Indication: RENAL CELL CARCINOMA
     Dosage: 50 MG, 1X/DAY
     Route: 048
     Dates: start: 20090622, end: 20090709
  2. NAPROXEN [Concomitant]
     Dosage: UNK
     Route: 048
  3. AMLODIPINE [Concomitant]
     Dosage: UNK
     Route: 048
  4. BLOPRESS [Concomitant]
     Dosage: UNK
     Route: 048
  5. FERROMIA [Concomitant]
     Dosage: UNK
     Route: 048
  6. TRANSAMIN [Concomitant]
     Dosage: UNK
     Route: 048
     Dates: start: 20090702
  7. MINIPRESS [Concomitant]
     Route: 048
     Dates: start: 20090704, end: 20090706
  8. METHYCOBAL [Concomitant]
     Dosage: UNK
     Route: 048
     Dates: start: 20090708
  9. PURSENNID [Concomitant]
     Dosage: UNK
     Route: 048
     Dates: start: 20090627
  10. KENALOG [Concomitant]
     Dosage: UNK
     Route: 048
     Dates: start: 20090630

REACTIONS (1)
  - GASTROINTESTINAL HAEMORRHAGE [None]
